FAERS Safety Report 5560249-1 (Version None)
Quarter: 2007Q4

REPORT INFORMATION
  Report Type: 
  Country: None (occurrence: None)
  Receive Date: 20071214
  Receipt Date: 20071031
  Transmission Date: 20080405
  Serious: No
  Sender: FDA-Public Use
  Company Number: US-ABBOTT-07P-163-0423106-00

PATIENT
  Sex: Female
  Weight: 83.082 kg

DRUGS (10)
  1. HUMIRA [Suspect]
     Indication: RHEUMATOID ARTHRITIS
     Route: 058
     Dates: start: 20070601, end: 20070601
  2. HUMIRA [Suspect]
  3. HUMIRA [Suspect]
     Indication: RHEUMATOID ARTHRITIS
     Dates: start: 20070601
  4. METHOTREXATE [Concomitant]
     Indication: RHEUMATOID ARTHRITIS
  5. IRBESARTAN [Concomitant]
     Indication: HYPERTENSION
  6. OMEPRAZOLE [Concomitant]
     Indication: DRUG THERAPY
  7. FLUOXETINE HYDROCHLORIDE [Concomitant]
     Indication: DEPRESSION
     Dates: start: 20000101
  8. IBUPROFEN [Concomitant]
     Indication: RHEUMATOID ARTHRITIS
  9. SALBUTAMOL SULFATE [Concomitant]
     Indication: ASTHMA
  10. SERETIDE [Concomitant]
     Indication: ASTHMA

REACTIONS (1)
  - INJECTION SITE PAIN [None]
